FAERS Safety Report 25660615 (Version 1)
Quarter: 2025Q3

REPORT INFORMATION
  Report Type: Spontaneous
  Country: US (occurrence: None)
  Receive Date: 20250808
  Receipt Date: 20250808
  Transmission Date: 20251021
  Serious: Yes (Other)
  Sender: FDA-CTU
  Company Number: None

PATIENT
  Sex: Male

DRUGS (12)
  1. LENALIDOMIDE [Suspect]
     Active Substance: LENALIDOMIDE
     Indication: Plasma cell myeloma
     Dosage: FREQUENCY : DAILY;?
     Route: 048
     Dates: start: 20250725
  2. VELCADE [Suspect]
     Active Substance: BORTEZOMIB
  3. ACETAMINOPHEN [Concomitant]
     Active Substance: ACETAMINOPHEN
  4. ACYCLOVIR TAB [Concomitant]
  5. ASPIRIN [Concomitant]
     Active Substance: ASPIRIN
  6. DARZALEX INJ FASPRO [Concomitant]
  7. DEXAMETHASON TAB [Concomitant]
  8. DILTIAZEM CAP [Concomitant]
  9. GABAPENTIN [Concomitant]
     Active Substance: GABAPENTIN
  10. ISOSORB MONO TAB [Concomitant]
  11. KETOCONAZOLE [Concomitant]
     Active Substance: KETOCONAZOLE
  12. LEVOCARNITIN TAB [Concomitant]

REACTIONS (4)
  - Fall [None]
  - Rib fracture [None]
  - Atrial flutter [None]
  - Neuropathy peripheral [None]
